FAERS Safety Report 4607111-6 (Version None)
Quarter: 2005Q1

REPORT INFORMATION
  Report Type: 
  Country: None (occurrence: None)
  Receive Date: 20050314
  Receipt Date: 20050228
  Transmission Date: 20050727
  Serious: Yes (Other)
  Sender: FDA-Public Use
  Company Number: US-AMGEN-US117616

PATIENT
  Sex: Male
  Weight: 45 kg

DRUGS (5)
  1. ENBREL [Suspect]
     Indication: SPONDYLOARTHROPATHY
     Route: 058
     Dates: start: 20050201, end: 20050222
  2. METHOTREXATE [Suspect]
  3. PREVACID [Concomitant]
     Dates: start: 20050126
  4. FOLIC ACID [Concomitant]
  5. MULTI-VITAMINS [Concomitant]

REACTIONS (2)
  - FACIAL PALSY [None]
  - OTITIS MEDIA [None]
